FAERS Safety Report 14312158 (Version 5)
Quarter: 2018Q1

REPORT INFORMATION
  Report Type: Spontaneous
  Country: JP (occurrence: JP)
  Receive Date: 20171221
  Receipt Date: 20180320
  Transmission Date: 20180509
  Serious: Yes (Other)
  Sender: FDA-Public Use
  Company Number: JP-AMGEN-JPNSP2016165960

PATIENT
  Age: 74 Year
  Sex: Female
  Weight: 41 kg

DRUGS (12)
  1. REPATHA [Suspect]
     Active Substance: EVOLOCUMAB
     Dosage: 140 MG, QMO
     Route: 058
     Dates: end: 20171205
  2. BAYASPIRIN [Concomitant]
     Active Substance: ASPIRIN
     Indication: AORTIC STENOSIS
     Dosage: 100 MG, QD
  3. PURSENNID [Concomitant]
     Active Substance: SENNOSIDES A AND B
     Indication: CONSTIPATION
     Dosage: 24 MG, QD
  4. WARFARIN [Concomitant]
     Active Substance: WARFARIN
     Indication: AORTIC STENOSIS
     Dosage: 1.25 MG, QD
  5. ZETIA [Concomitant]
     Active Substance: EZETIMIBE
     Indication: TYPE IIA HYPERLIPIDAEMIA
     Dosage: 10 MG, QD
  6. NEXIUM [Concomitant]
     Active Substance: ESOMEPRAZOLE MAGNESIUM
     Indication: GASTROOESOPHAGEAL REFLUX DISEASE
     Dosage: 20 MG, QD
  7. AMLODIPINE [Concomitant]
     Active Substance: AMLODIPINE BESYLATE
     Indication: HYPERTENSION
     Dosage: 5 MG, QD
  8. CHOLEBINE [Concomitant]
     Active Substance: COLESTILAN CHLORIDE
     Dosage: 3000 MG, QD
  9. EDIROL [Concomitant]
     Active Substance: ELDECALCITOL
     Indication: OSTEOPOROSIS
     Dosage: 0.75 MUG, QD
  10. REPATHA [Suspect]
     Active Substance: EVOLOCUMAB
     Indication: TYPE IIA HYPERLIPIDAEMIA
     Dosage: 140 MG, Q2WK
     Route: 058
     Dates: start: 20160927
  11. ATORVASTATIN [Concomitant]
     Active Substance: ATORVASTATIN
     Indication: TYPE IIA HYPERLIPIDAEMIA
     Dosage: 40 MG, QD
  12. IRBETAN [Concomitant]
     Active Substance: IRBESARTAN
     Indication: HYPERTENSION
     Dosage: 100 MG, QD

REACTIONS (2)
  - Basedow^s disease [Not Recovered/Not Resolved]
  - Off label use [Unknown]

NARRATIVE: CASE EVENT DATE: 20171205
